FAERS Safety Report 20978037 (Version 1)
Quarter: 2022Q2

REPORT INFORMATION
  Report Type: Report from Study
  Country: GB (occurrence: GB)
  Receive Date: 20220618
  Receipt Date: 20220618
  Transmission Date: 20220720
  Serious: Yes (Hospitalization, Other)
  Sender: FDA-Public Use
  Company Number: GB-TEVA-2022-GB-2046954

PATIENT
  Age: 78 Year
  Sex: Female

DRUGS (1)
  1. OCTREOTIDE [Suspect]
     Active Substance: OCTREOTIDE
     Route: 065

REACTIONS (3)
  - General physical health deterioration [Unknown]
  - Trance [Recovered/Resolved]
  - Bedridden [Unknown]

NARRATIVE: CASE EVENT DATE: 20220101
